FAERS Safety Report 6639823-7 (Version None)
Quarter: 2010Q1

REPORT INFORMATION
  Report Type: 
  Country: None (occurrence: None)
  Receive Date: 20100301
  Receipt Date: 20090915
  Transmission Date: 20100710
  Serious: Yes (Other)
  Sender: FDA-Public Use
  Company Number: RB-20405-2009

PATIENT
  Age: 22 Month

DRUGS (1)
  1. SUBOXONE [Suspect]
     Indication: ACCIDENTAL EXPOSURE
     Dosage: ORAL
     Route: 048
     Dates: start: 20090913, end: 20090913

REACTIONS (4)
  - ACCIDENTAL EXPOSURE [None]
  - FLUSHING [None]
  - MIOSIS [None]
  - SOMNOLENCE [None]
